FAERS Safety Report 17744698 (Version 1)
Quarter: 2020Q2

REPORT INFORMATION
  Report Type: Spontaneous
  Country: US (occurrence: US)
  Receive Date: 20200504
  Receipt Date: 20200504
  Transmission Date: 20200714
  Serious: Yes (Hospitalization)
  Sender: FDA-Public Use
  Company Number: None

PATIENT
  Age: 82 Year
  Sex: Male

DRUGS (1)
  1. ABIRATERONE 250MG TAB [Suspect]
     Active Substance: ABIRATERONE
     Route: 048
     Dates: start: 20191229

REACTIONS (4)
  - Asthenia [None]
  - Adrenal insufficiency [None]
  - Blood potassium decreased [None]
  - Dehydration [None]

NARRATIVE: CASE EVENT DATE: 20200429
